FAERS Safety Report 9201004 (Version 2)
Quarter: 2013Q2

REPORT INFORMATION
  Report Type: Spontaneous
  Country: US (occurrence: US)
  Receive Date: 20130401
  Receipt Date: 20130506
  Transmission Date: 20140414
  Serious: Yes (Other)
  Sender: FDA-Public Use
  Company Number: US-JNJFOC-20130315438

PATIENT
  Age: 48 Year
  Sex: Female
  Weight: 57.61 kg

DRUGS (9)
  1. REMICADE [Suspect]
     Indication: RHEUMATOID ARTHRITIS
     Dosage: 3RD LOADING DOSE
     Route: 042
     Dates: start: 20130320
  2. REMICADE [Suspect]
     Indication: RHEUMATOID ARTHRITIS
     Dosage: 2ND LOADING DOSE
     Route: 042
     Dates: start: 20130220
  3. REMICADE [Suspect]
     Indication: RHEUMATOID ARTHRITIS
     Dosage: 1ST LOADING DOSE
     Route: 042
     Dates: start: 20130205
  4. HYDROXYCHLOROQUINE [Concomitant]
     Route: 065
  5. NABUMETONE [Concomitant]
     Indication: ANTIINFLAMMATORY THERAPY
     Route: 065
  6. METHOTREXATE [Concomitant]
     Indication: RHEUMATOID ARTHRITIS
     Dosage: 25 MG OF WEEK INJECTION
     Route: 058
  7. LORTAB [Concomitant]
     Indication: PAIN
     Dosage: 7.5 MG/500 MG 1-2 AS NECESSARY
     Route: 065
  8. PLAQUENIL [Concomitant]
     Route: 065
  9. MEDROL DOSE PACK [Concomitant]
     Indication: RHEUMATOID ARTHRITIS
     Dosage: AS NECESSARY
     Route: 065

REACTIONS (4)
  - Infusion related reaction [Recovered/Resolved]
  - Muscle spasms [Recovered/Resolved]
  - Hypertension [Recovered/Resolved]
  - Adverse drug reaction [Recovered/Resolved]
